FAERS Safety Report 16382898 (Version 1)
Quarter: 2019Q2

REPORT INFORMATION
  Report Type: Spontaneous
  Country: US (occurrence: US)
  Receive Date: 20190506
  Receipt Date: 20190506
  Transmission Date: 20190711
  Serious: Yes (Other)
  Sender: FDA-Public Use
  Company Number: None

PATIENT
  Age: 79 Year
  Sex: Female
  Weight: 74.9 kg

DRUGS (2)
  1. RETACRIT [Suspect]
     Active Substance: EPOETIN ALFA-EPBX
     Indication: ANAEMIA
     Dosage: ?          OTHER FREQUENCY:WEEKLY;?
     Route: 058
     Dates: start: 20190322
  2. GRANIX [Concomitant]
     Active Substance: TBO-FILGRASTIM
     Dates: start: 20190412

REACTIONS (3)
  - Lethargy [None]
  - Bone pain [None]
  - Haemoglobin decreased [None]

NARRATIVE: CASE EVENT DATE: 20190503
